FAERS Safety Report 19405774 (Version 4)
Quarter: 2023Q2

REPORT INFORMATION
  Report Type: Spontaneous
  Country: AU (occurrence: AU)
  Receive Date: 20210611
  Receipt Date: 20230410
  Transmission Date: 20230721
  Serious: Yes (Other)
  Sender: FDA-Public Use
  Company Number: AU-PFIZER INC-2019275991

PATIENT
  Age: 47 Year
  Sex: Female
  Weight: 81 kg

DRUGS (5)
  1. XELJANZ [Suspect]
     Active Substance: TOFACITINIB CITRATE
     Indication: Colitis ulcerative
     Dosage: 10 MG, TWICE A DAY
     Route: 048
     Dates: start: 20190422, end: 2019
  2. XELJANZ [Suspect]
     Active Substance: TOFACITINIB CITRATE
     Dosage: 5 MG, TWICE A DAY
     Route: 048
     Dates: start: 20190618, end: 20190627
  3. XELJANZ [Suspect]
     Active Substance: TOFACITINIB CITRATE
     Dosage: 10 MG, 2X/DAY
  4. XELJANZ [Suspect]
     Active Substance: TOFACITINIB CITRATE
     Dosage: 5 MG, 2X/DAY
     Route: 048
  5. STELARA [Concomitant]
     Active Substance: USTEKINUMAB
     Dosage: 90 MG, 8 WEEKLY

REACTIONS (5)
  - Colitis ulcerative [Recovering/Resolving]
  - Haematochezia [Unknown]
  - C-reactive protein increased [Unknown]
  - Condition aggravated [Unknown]
  - Arthralgia [Recovering/Resolving]

NARRATIVE: CASE EVENT DATE: 20190601
